FAERS Safety Report 9369591 (Version 1)
Quarter: 2013Q2

REPORT INFORMATION
  Report Type: Spontaneous
  Country: US (occurrence: None)
  Receive Date: 20130621
  Receipt Date: 20130621
  Transmission Date: 20140414
  Serious: Yes (Other)
  Sender: FDA-Public Use
  Company Number: 2013P1007852

PATIENT
  Sex: Female

DRUGS (2)
  1. OXTELLAR XR [Suspect]
  2. DEPO-PROVERA [Suspect]

REACTIONS (4)
  - Headache [None]
  - Haemorrhage [None]
  - Convulsion [None]
  - Hypersensitivity [None]
